FAERS Safety Report 6278897-2 (Version None)
Quarter: 2009Q3

REPORT INFORMATION
  Report Type: 
  Country: None (occurrence: None)
  Receive Date: 20090723
  Receipt Date: 20090714
  Transmission Date: 20100115
  Serious: Yes (Hospitalization, Other)
  Sender: FDA-Public Use
  Company Number: US-TEVA-194959USA

PATIENT
  Sex: Female

DRUGS (1)
  1. PHENTERMINE HYDROCHLORIDE 37.5 MG [Suspect]
     Indication: WEIGHT DECREASED
     Route: 048

REACTIONS (1)
  - SUBARACHNOID HAEMORRHAGE [None]
